FAERS Safety Report 6496246-1 (Version None)
Quarter: 2009Q4

REPORT INFORMATION
  Report Type: 
  Country: None (occurrence: None)
  Receive Date: 20091214
  Receipt Date: 20091030
  Transmission Date: 20100525
  Serious: No
  Sender: FDA-Public Use
  Company Number: US-BRISTOL-MYERS SQUIBB COMPANY-14839039

PATIENT
  Age: 15 Year
  Sex: Female
  Weight: 63 kg

DRUGS (3)
  1. ABILIFY [Suspect]
     Indication: PANIC ATTACK
     Dosage: STARTED WITH 2 MG FOR 14 DAYS,THEN 5MG HALF TABLET FOR 11 DAYS
     Dates: end: 20091026
  2. ABILIFY [Suspect]
     Indication: DEPRESSION
     Dosage: STARTED WITH 2 MG FOR 14 DAYS,THEN 5MG HALF TABLET FOR 11 DAYS
     Dates: end: 20091026
  3. ABILIFY [Suspect]
     Indication: OBSESSIVE-COMPULSIVE DISORDER
     Dosage: STARTED WITH 2 MG FOR 14 DAYS,THEN 5MG HALF TABLET FOR 11 DAYS
     Dates: end: 20091026

REACTIONS (4)
  - FLAT AFFECT [None]
  - HYPOAESTHESIA [None]
  - OBSESSIVE-COMPULSIVE DISORDER [None]
  - PANIC ATTACK [None]
